FAERS Safety Report 9242147 (Version 1)
Quarter: 2013Q2

REPORT INFORMATION
  Report Type: Spontaneous
  Country: CN (occurrence: CN)
  Receive Date: 20130419
  Receipt Date: 20130419
  Transmission Date: 20140414
  Serious: Yes (Death)
  Sender: FDA-Public Use
  Company Number: CN-JNJFOC-20130409596

PATIENT
  Sex: 0

DRUGS (1)
  1. RISPERDAL [Suspect]
     Indication: DELIRIUM
     Dosage: 0.5 TO 1 MG/D, AND WAS INCREASED TO 1 TO 2 MG/D AFTER 2 TO 3 DAYS, AND THEN MAINTAINED FOR ONE WEEK
     Route: 048

REACTIONS (2)
  - Death [Fatal]
  - Off label use [Recovered/Resolved]
